FAERS Safety Report 17501722 (Version 2)
Quarter: 2020Q2

REPORT INFORMATION
  Report Type: Spontaneous
  Country: US (occurrence: US)
  Receive Date: 20200305
  Receipt Date: 20200625
  Transmission Date: 20200713
  Serious: Yes (Other)
  Sender: FDA-Public Use
  Company Number: US-PFIZER INC-2020097991

PATIENT
  Age: 81 Year
  Sex: Female
  Weight: 65.77 kg

DRUGS (2)
  1. DILANTIN [Suspect]
     Active Substance: PHENYTOIN
     Indication: SEIZURE
     Dosage: 300 MG, DAILY (AT BEDTIME)
     Route: 048
     Dates: start: 1978
  2. METOPROLOL TARTRATE. [Concomitant]
     Active Substance: METOPROLOL TARTRATE
     Indication: HYPERTENSION
     Dosage: 100 MG, 3X/DAY

REACTIONS (6)
  - Aphonia [Unknown]
  - Non-Hodgkin^s lymphoma stage IV [Unknown]
  - Body height decreased [Unknown]
  - Cognitive disorder [Unknown]
  - Dysphagia [Unknown]
  - Memory impairment [Unknown]

NARRATIVE: CASE EVENT DATE: 201605
